FAERS Safety Report 9205712 (Version 3)
Quarter: 2013Q2

REPORT INFORMATION
  Report Type: Spontaneous
  Country: JP (occurrence: JP)
  Receive Date: 20130403
  Receipt Date: 20130417
  Transmission Date: 20140414
  Serious: Yes (Hospitalization, Other)
  Sender: FDA-Public Use
  Company Number: JP-PFIZER INC-2013100906

PATIENT
  Age: 64 Year
  Sex: Male

DRUGS (1)
  1. FARMORUBICIN [Suspect]
     Indication: HEPATIC CANCER
     Dosage: 30 MG, 1X/DAY
     Dates: start: 20130214

REACTIONS (1)
  - Liver abscess [Recovered/Resolved]
